FAERS Safety Report 17220339 (Version 1)
Quarter: 2019Q4

REPORT INFORMATION
  Report Type: Spontaneous
  Country: JP (occurrence: JP)
  Receive Date: 20191231
  Receipt Date: 20191231
  Transmission Date: 20200122
  Serious: Yes (Hospitalization)
  Sender: FDA-Public Use
  Company Number: JP-SA-2019SA357714

PATIENT
  Age: 75 Year
  Sex: Male

DRUGS (5)
  1. FLUOROURACIL. [Concomitant]
     Active Substance: FLUOROURACIL
     Dosage: UNK UNK, UNK
     Route: 065
     Dates: start: 201808
  2. BEVACIZUMAB. [Concomitant]
     Active Substance: BEVACIZUMAB
     Dosage: UNK UNK, UNK
     Route: 065
     Dates: start: 201808
  3. ELPLAT [Suspect]
     Active Substance: OXALIPLATIN
     Indication: RECTAL CANCER
     Dosage: UNK, ONCE IN 2 WEEKS
     Route: 041
     Dates: start: 201808
  4. LEVOFOLINATE CALCIUM [Suspect]
     Active Substance: LEVOLEUCOVORIN CALCIUM
     Indication: RECTAL CANCER
     Dosage: ONCE IN 2 WEEKS
     Route: 041
     Dates: start: 201808
  5. IRINOTECAN HYDROCHLORIDE TRIHYDRATE [IRINOTECAN MONOHYDROCHLORIDE TRIH [Concomitant]
     Dosage: UNK
     Route: 065
     Dates: start: 201808

REACTIONS (2)
  - Bone marrow failure [Unknown]
  - Appendicitis [Unknown]
